FAERS Safety Report 12991242 (Version 1)
Quarter: 2016Q4

REPORT INFORMATION
  Report Type: Spontaneous
  Country: US (occurrence: US)
  Receive Date: 20161201
  Receipt Date: 20161201
  Transmission Date: 20170207
  Serious: No
  Sender: FDA-Public Use
  Company Number: US-009507513-1611USA008368

PATIENT
  Age: 21 Year
  Sex: Female
  Weight: 66.21 kg

DRUGS (2)
  1. NEXPLANON [Suspect]
     Active Substance: ETONOGESTREL
     Indication: CONTRACEPTION
     Dosage: 68 MG 1 ROD EVERY 3 WEEKS
     Route: 059
     Dates: start: 20151214, end: 20161116
  2. SINGULAIR [Concomitant]
     Active Substance: MONTELUKAST SODIUM

REACTIONS (3)
  - Device breakage [Recovered/Resolved]
  - Difficulty removing drug implant [Recovered/Resolved]
  - Menorrhagia [Recovering/Resolving]

NARRATIVE: CASE EVENT DATE: 20161116
